FAERS Safety Report 8707259 (Version 9)
Quarter: 2016Q2

REPORT INFORMATION
  Report Type: Spontaneous
  Country: US (occurrence: US)
  Receive Date: 20120803
  Receipt Date: 20160404
  Transmission Date: 20160815
  Serious: Yes (Hospitalization, Disabling, Other)
  Sender: FDA-Public Use
  Company Number: US-ASTRAZENECA-2012SE53032

PATIENT
  Age: 544 Month
  Sex: Male
  Weight: 136.1 kg

DRUGS (30)
  1. DIOVAN [Concomitant]
     Active Substance: VALSARTAN
     Route: 048
     Dates: start: 20130104
  2. ACTOPLUS MET [Concomitant]
     Active Substance: METFORMIN HYDROCHLORIDE\PIOGLITAZONE HYDROCHLORIDE
     Route: 048
     Dates: start: 20110919
  3. NORCO [Concomitant]
     Active Substance: ACETAMINOPHEN\HYDROCODONE BITARTRATE
  4. XARELTO [Concomitant]
     Active Substance: RIVAROXABAN
  5. PRADAXA [Concomitant]
     Active Substance: DABIGATRAN ETEXILATE MESYLATE
     Route: 048
     Dates: start: 20130107
  6. METRONIDAZOLE. [Concomitant]
     Active Substance: METRONIDAZOLE
     Route: 048
     Dates: start: 20151207
  7. FLAGYL [Concomitant]
     Active Substance: METRONIDAZOLE\METRONIDAZOLE HYDROCHLORIDE
  8. ACTOS [Concomitant]
     Active Substance: PIOGLITAZONE HYDROCHLORIDE
  9. JANUVIA [Concomitant]
     Active Substance: SITAGLIPTIN PHOSPHATE
  10. SYNTHROID/LEVOTHROID [Concomitant]
     Dates: start: 20110415
  11. GLUCOPHAGE [Concomitant]
     Active Substance: METFORMIN HYDROCHLORIDE
  12. CRESTOR [Suspect]
     Active Substance: ROSUVASTATIN CALCIUM
     Indication: BLOOD CHOLESTEROL INCREASED
     Route: 048
     Dates: start: 199101
  13. CRESTOR [Suspect]
     Active Substance: ROSUVASTATIN CALCIUM
     Indication: BLOOD CHOLESTEROL INCREASED
     Route: 048
     Dates: start: 20110323
  14. WARFARIN [Concomitant]
     Active Substance: WARFARIN
  15. SINGULAIR [Concomitant]
     Active Substance: MONTELUKAST SODIUM
  16. CIPROFLOXACIN. [Concomitant]
     Active Substance: CIPROFLOXACIN
  17. CRESTOR [Suspect]
     Active Substance: ROSUVASTATIN CALCIUM
     Indication: BLOOD CHOLESTEROL INCREASED
     Route: 048
     Dates: start: 20110415
  18. GLIPIZIDE. [Concomitant]
     Active Substance: GLIPIZIDE
     Dates: start: 20151228
  19. ATORVASTATIN [Concomitant]
     Active Substance: ATORVASTATIN
     Route: 048
     Dates: start: 20151208
  20. OXYCODONE [Concomitant]
     Active Substance: OXYCODONE
  21. METOPROLOL TARTRATE. [Concomitant]
     Active Substance: METOPROLOL TARTRATE
     Indication: ATRIAL FIBRILLATION
     Dates: start: 2011
  22. FOLIC ACID. [Concomitant]
     Active Substance: FOLIC ACID
     Route: 048
     Dates: start: 20130104
  23. ZOLPIDEM [Concomitant]
     Active Substance: ZOLPIDEM\ZOLPIDEM TARTRATE
     Route: 048
     Dates: start: 20121205
  24. MODAFINIL. [Concomitant]
     Active Substance: MODAFINIL
     Route: 048
     Dates: start: 20121129
  25. FERROUS SULFATE. [Concomitant]
     Active Substance: FERROUS SULFATE
     Route: 048
     Dates: start: 20121129
  26. XOPENEX [Concomitant]
     Active Substance: LEVALBUTEROL HYDROCHLORIDE
  27. ASPIRIN. [Concomitant]
     Active Substance: ASPIRIN
  28. LASIX [Concomitant]
     Active Substance: FUROSEMIDE
  29. COLACE [Concomitant]
     Active Substance: DOCUSATE SODIUM
  30. SIMVASTATIN. [Concomitant]
     Active Substance: SIMVASTATIN
     Route: 048
     Dates: start: 20130108

REACTIONS (16)
  - Myocardial infarction [Unknown]
  - Arrhythmia [Unknown]
  - Type 2 diabetes mellitus [Not Recovered/Not Resolved]
  - Atrial fibrillation [Unknown]
  - Blood triglycerides increased [Not Recovered/Not Resolved]
  - Cardiomegaly [Unknown]
  - Abdominal hernia [Not Recovered/Not Resolved]
  - Syncope [Unknown]
  - Ischaemic stroke [Unknown]
  - Cardiomyopathy [Not Recovered/Not Resolved]
  - Obesity [Not Recovered/Not Resolved]
  - Cardiac failure congestive [Unknown]
  - Angina pectoris [Unknown]
  - Coronary artery disease [Unknown]
  - Hypertension [Unknown]
  - Cardiac valve disease [Not Recovered/Not Resolved]

NARRATIVE: CASE EVENT DATE: 199101
